FAERS Safety Report 24308955 (Version 3)
Quarter: 2025Q1

REPORT INFORMATION
  Report Type: Spontaneous
  Country: FR (occurrence: FR)
  Receive Date: 20240911
  Receipt Date: 20250115
  Transmission Date: 20250408
  Serious: Yes (Other)
  Sender: FERRING
  Company Number: None

PATIENT

DRUGS (4)
  1. FIRMAGON [Suspect]
     Active Substance: DEGARELIX ACETATE
     Indication: Prostate cancer stage III
     Dosage: 80 MG, MONTHLY
     Route: 058
     Dates: start: 20230707
  2. ZYTIGA [Suspect]
     Active Substance: ABIRATERONE ACETATE
     Indication: Prostate cancer stage III
     Dosage: 500 MG, 2 TIMES DAILY
     Route: 048
     Dates: start: 20230911
  3. SILODOSIN [Suspect]
     Active Substance: SILODOSIN
     Indication: Prostate cancer stage III
     Dosage: 8 MG, EVERY OTHER DAY
     Route: 048
     Dates: start: 20230707
  4. PREDNISONE [Suspect]
     Active Substance: PREDNISONE
     Indication: Prostate cancer stage III
     Dosage: 4 MG, 1 TIME DAILY
     Route: 048
     Dates: start: 20230911

REACTIONS (1)
  - Dermatitis bullous [Not Recovered/Not Resolved]

NARRATIVE: CASE EVENT DATE: 20240731
